FAERS Safety Report 6005586-1 (Version None)
Quarter: 2008Q4

REPORT INFORMATION
  Report Type: 
  Country: None (occurrence: None)
  Receive Date: 20081217
  Receipt Date: 20081211
  Transmission Date: 20090506
  Serious: Yes (Life-Threatening, Hospitalization)
  Sender: FDA-Public Use
  Company Number: US-AVENTIS-200819589GDDC

PATIENT
  Age: 63 Year
  Sex: Male
  Weight: 111.3 kg

DRUGS (18)
  1. PLACEBO [Suspect]
     Indication: PROSTATE CANCER METASTATIC
     Route: 042
     Dates: start: 20080828, end: 20080828
  2. DOCETAXEL [Suspect]
     Indication: PROSTATE CANCER METASTATIC
     Route: 042
     Dates: start: 20080828, end: 20080828
  3. PREDNISONE TAB [Suspect]
     Indication: PROSTATE CANCER METASTATIC
     Route: 048
     Dates: start: 20080805, end: 20081004
  4. LUPRON [Concomitant]
     Indication: HORMONE THERAPY
     Dates: start: 20070813
  5. ZANTAC [Concomitant]
     Dates: start: 19870101
  6. ALBUTROL [Concomitant]
     Dates: start: 19700101
  7. LITHIUM [Concomitant]
     Dates: start: 20020101
  8. ACCUPRIL [Concomitant]
     Dates: start: 19920101
  9. ZYPREXA [Concomitant]
     Dates: start: 20020101
  10. GEMFIBROZIL [Concomitant]
     Dates: start: 19930101
  11. GLUCOPHAGE [Concomitant]
     Dates: start: 20080301
  12. IMODIUM [Concomitant]
     Dates: start: 19800101
  13. ADVAIR DISKUS 250/50 [Concomitant]
     Dates: start: 20080301
  14. LORAZEPAM [Concomitant]
     Dates: start: 20071001
  15. UROXATRAL [Concomitant]
     Dates: start: 20070601
  16. LUPRON DEPOT [Concomitant]
     Dates: start: 20080813
  17. PRILOSEC [Concomitant]
     Dates: start: 20080811
  18. DIFLUCAN [Concomitant]
     Dates: start: 20080903

REACTIONS (1)
  - RENAL FAILURE [None]
